FAERS Safety Report 11545190 (Version 1)
Quarter: 2015Q3

REPORT INFORMATION
  Report Type: Spontaneous
  Country: US (occurrence: US)
  Receive Date: 20150924
  Receipt Date: 20150924
  Transmission Date: 20151125
  Serious: No
  Sender: FDA-Public Use
  Company Number: US-SIGMAPHARM LABORATORIES, LLC-2015SIG00029

PATIENT
  Sex: Female
  Weight: 68.27 kg

DRUGS (6)
  1. LIOTHYRONINE SODIUM. [Suspect]
     Active Substance: LIOTHYRONINE SODIUM
     Dosage: 12.5 ?G, 1X/DAY
     Route: 048
     Dates: start: 201505, end: 201505
  2. UNSPECIFIED VITAMIN(S) AND MINERAL(S) [Concomitant]
  3. MAGNESIUM [Concomitant]
     Active Substance: MAGNESIUM
  4. MULTIVITAMIN [Concomitant]
     Active Substance: VITAMINS
  5. LIOTHYRONINE SODIUM. [Suspect]
     Active Substance: LIOTHYRONINE SODIUM
     Indication: HYPOTHYROIDISM
     Dosage: 25 ?G, 1X/DAY
     Route: 048
     Dates: start: 201305, end: 201505
  6. LIOTHYRONINE SODIUM. [Suspect]
     Active Substance: LIOTHYRONINE SODIUM
     Dosage: 6.25 ?G, 1X/DAY
     Route: 048
     Dates: start: 2015

REACTIONS (3)
  - Tinnitus [Recovering/Resolving]
  - Nausea [Unknown]
  - Urticaria [Unknown]

NARRATIVE: CASE EVENT DATE: 2015
